FAERS Safety Report 9753569 (Version 1)
Quarter: 2013Q4

REPORT INFORMATION
  Report Type: Spontaneous
  Country: GB (occurrence: GB)
  Receive Date: 20131213
  Receipt Date: 20131213
  Transmission Date: 20140711
  Serious: Yes (Other)
  Sender: FDA-Public Use
  Company Number: GB-WATSON-2013-22733

PATIENT
  Age: 63 Year
  Sex: Female

DRUGS (3)
  1. METRONIDAZOLE (UNKNOWN) [Suspect]
     Indication: TOOTH INFECTION
     Dosage: 200 MG, SINGLE
     Route: 048
     Dates: start: 20131111, end: 20131111
  2. SOTALOL [Concomitant]
     Indication: HEART RATE INCREASED
     Dosage: UNK
     Route: 065
  3. BETAHISTINE [Concomitant]
     Indication: MENIERE^S DISEASE
     Dosage: UNK
     Route: 065

REACTIONS (2)
  - Heart rate irregular [Recovered/Resolved]
  - Heart rate increased [Recovered/Resolved]
